FAERS Safety Report 23272323 (Version 1)
Quarter: 2023Q4

REPORT INFORMATION
  Report Type: Spontaneous
  Country: US (occurrence: None)
  Receive Date: 20231206
  Receipt Date: 20231206
  Transmission Date: 20240110
  Serious: Yes (Other)
  Sender: FDA-Public Use
  Company Number: None

PATIENT
  Age: 41 Year
  Sex: Female
  Weight: 92.7 kg

DRUGS (4)
  1. REVLIMID [Suspect]
     Active Substance: LENALIDOMIDE
     Indication: Amyloidosis
     Dosage: FREQUENCY : DAILY;?
     Route: 048
     Dates: start: 20230406
  2. DARZALEX [Concomitant]
     Active Substance: DARATUMUMAB
     Dates: start: 20230406
  3. Bortezamib [Concomitant]
     Dates: start: 20230406
  4. DECADRON [Concomitant]
     Active Substance: DEXAMETHASONE
     Dates: start: 20230402

REACTIONS (1)
  - Blood creatinine increased [None]

NARRATIVE: CASE EVENT DATE: 20231205
